FAERS Safety Report 9616312 (Version 1)
Quarter: 2013Q4

REPORT INFORMATION
  Report Type: Spontaneous
  Country: US (occurrence: None)
  Receive Date: 20131010
  Receipt Date: 20131010
  Transmission Date: 20140711
  Serious: Yes (Hospitalization)
  Sender: FDA-Public Use
  Company Number: None

PATIENT
  Sex: Male

DRUGS (4)
  1. 5-FLUOROURACIL (5-FU) [Suspect]
  2. IRINOTECAN [Suspect]
  3. LEUCOVORIN CALCIUM [Suspect]
  4. OXALIPLATIN (ELOXATIN) [Suspect]

REACTIONS (5)
  - Pyrexia [None]
  - Nausea [None]
  - Mental status changes [None]
  - Cholangitis [None]
  - Stent placement [None]
